FAERS Safety Report 7494801-3 (Version None)
Quarter: 2011Q2

REPORT INFORMATION
  Report Type: 
  Country: None (occurrence: None)
  Receive Date: 20110520
  Receipt Date: 20110513
  Transmission Date: 20111010
  Serious: Yes (Hospitalization)
  Sender: FDA-Public Use
  Company Number: A0927318A

PATIENT
  Age: 58 Year
  Sex: Female

DRUGS (21)
  1. ADVAIR DISKUS 100/50 [Suspect]
     Indication: CHRONIC OBSTRUCTIVE PULMONARY DISEASE
     Dosage: 1PUFF TWICE PER DAY
     Route: 055
     Dates: end: 20100801
  2. WELLBUTRIN [Concomitant]
  3. SINGULAIR [Concomitant]
  4. COMBIVENT [Concomitant]
  5. ULORIC [Concomitant]
  6. BACLOFEN [Concomitant]
  7. REQUIP [Concomitant]
  8. PROVENTIL [Concomitant]
  9. MOBIC [Concomitant]
  10. VESICARE [Concomitant]
  11. NEBULIZER [Concomitant]
  12. CYMBALTA [Concomitant]
  13. HYDROCODONE [Concomitant]
  14. UROXATRAL [Concomitant]
  15. LASIX [Concomitant]
  16. LYRICA [Concomitant]
  17. ABILIFY [Concomitant]
  18. BUDESONIDE [Concomitant]
  19. ALBUTEROL [Concomitant]
  20. MORPHINE [Concomitant]
  21. TOFRANIL [Concomitant]

REACTIONS (1)
  - BRONCHOPULMONARY ASPERGILLOSIS [None]
